FAERS Safety Report 8811570 (Version 2)
Quarter: 2012Q4

REPORT INFORMATION
  Report Type: Report from Study
  Country: US (occurrence: US)
  Receive Date: 20120927
  Receipt Date: 20121010
  Transmission Date: 20130627
  Serious: Yes (Life-Threatening, Hospitalization, Disabling)
  Sender: FDA-Public Use
  Company Number: US-ACTELION-A-NJ2012-72046

PATIENT
  Age: 30 Year
  Sex: Female

DRUGS (1)
  1. TRACLEER [Suspect]
     Indication: PULMONARY ARTERIAL HYPERTENSION
     Dosage: UNK
     Route: 048
     Dates: start: 201207, end: 2012

REACTIONS (3)
  - Pulmonary embolism [Not Recovered/Not Resolved]
  - Pulseless electrical activity [Recovering/Resolving]
  - General physical health deterioration [Not Recovered/Not Resolved]
